FAERS Safety Report 8195385-7 (Version None)
Quarter: 2012Q1

REPORT INFORMATION
  Report Type: 
  Country: None (occurrence: None)
  Receive Date: 20120308
  Receipt Date: 20120228
  Transmission Date: 20120608
  Serious: Yes (Other)
  Sender: FDA-Public Use
  Company Number: DE-GLAXOSMITHKLINE-B0786428A

PATIENT
  Age: 24 Year
  Sex: Female

DRUGS (4)
  1. ERYTHROMYCIN [Suspect]
     Indication: RESPIRATORY DISORDER
  2. OSELTAMIVIR [Suspect]
     Indication: H1N1 INFLUENZA
  3. ZANAMIVIR [Suspect]
  4. CEFUROXIME [Suspect]
     Indication: RESPIRATORY DISORDER

REACTIONS (2)
  - ABORTION SPONTANEOUS [None]
  - MATERNAL EXPOSURE DURING PREGNANCY [None]
